FAERS Safety Report 6417203-7 (Version None)
Quarter: 2009Q4

REPORT INFORMATION
  Report Type: 
  Country: None (occurrence: None)
  Receive Date: 20091027
  Receipt Date: 20091027
  Transmission Date: 20100525
  Serious: Yes (Hospitalization)
  Sender: FDA-Public Use
  Company Number: None

PATIENT
  Sex: Female
  Weight: 76.5 kg

DRUGS (6)
  1. VELCADE [Suspect]
     Indication: DIFFUSE LARGE B-CELL LYMPHOMA
     Dosage: 1.5 MG/M2 DAY 2 + 5 INJECTION
     Dates: start: 20091003
  2. VELCADE [Suspect]
     Indication: DIFFUSE LARGE B-CELL LYMPHOMA
     Dosage: 1.5 MG/M2 DAY 2 + 5 INJECTION
     Dates: start: 20091006
  3. DICE + RITUXIMAB [Suspect]
     Indication: DIFFUSE LARGE B-CELL LYMPHOMA
     Dosage: DAY 1-4 IV
     Route: 042
     Dates: start: 20091002, end: 20091004
  4. ADVAIR DISKUS IN [Concomitant]
  5. SPIRIVA [Concomitant]
  6. VITAMIN D3 [Concomitant]

REACTIONS (3)
  - ESCHERICHIA BACTERAEMIA [None]
  - FEBRILE NEUTROPENIA [None]
  - PATHOGEN RESISTANCE [None]
